FAERS Safety Report 19729142 (Version 2)
Quarter: 2021Q3

REPORT INFORMATION
  Report Type: Spontaneous
  Country: US (occurrence: US)
  Receive Date: 20210821
  Receipt Date: 20210929
  Transmission Date: 20211014
  Serious: No
  Sender: FDA-Public Use
  Company Number: US-AMGEN-USASP2021125823

PATIENT
  Age: 54 Year
  Sex: Male

DRUGS (6)
  1. ARANESP [Suspect]
     Active Substance: DARBEPOETIN ALFA
     Indication: HIV INFECTION
  2. ARANESP [Suspect]
     Active Substance: DARBEPOETIN ALFA
     Indication: ESSENTIAL HYPERTENSION
  3. ARANESP [Suspect]
     Active Substance: DARBEPOETIN ALFA
     Indication: DIABETES MELLITUS
  4. ARANESP [Suspect]
     Active Substance: DARBEPOETIN ALFA
     Indication: ENCEPHALOPATHY
  5. ARANESP [Suspect]
     Active Substance: DARBEPOETIN ALFA
     Indication: CEREBRAL INFARCTION
  6. ARANESP [Suspect]
     Active Substance: DARBEPOETIN ALFA
     Indication: END STAGE RENAL DISEASE
     Dosage: 60 MICROGRAM, QWK
     Route: 065
     Dates: start: 20210611

REACTIONS (1)
  - Inappropriate schedule of product administration [Unknown]

NARRATIVE: CASE EVENT DATE: 20210813
